FAERS Safety Report 5196736-8 (Version None)
Quarter: 2007Q1

REPORT INFORMATION
  Report Type: 
  Country: None (occurrence: None)
  Receive Date: 20070103
  Receipt Date: 20061219
  Transmission Date: 20070707
  Serious: Yes (Hospitalization, Other)
  Sender: FDA-Public Use
  Company Number: PHFR2006GB03076

PATIENT
  Age: 53 Year
  Sex: Male

DRUGS (6)
  1. THIAMINE [Concomitant]
     Indication: ALCOHOL USE
     Dosage: 300 MG, QD
     Route: 048
  2. CLONAZEPAM [Concomitant]
     Indication: SCHIZOPHRENIA
     Dosage: 5 MG, BID
     Route: 048
  3. NIZORAL [Concomitant]
     Route: 065
  4. CLOZARIL [Suspect]
     Indication: SCHIZOPHRENIA
     Dosage: 350 MG/DAY
     Route: 048
     Dates: start: 20060920
  5. CLOZARIL [Suspect]
     Dosage: 150MG/DAY
     Route: 048
  6. PROCYCLIDINE HYDROCHLORIDE 2MG TAB [Concomitant]
     Dosage: 5 MG, TID

REACTIONS (25)
  - AGITATION [None]
  - ATRIAL FIBRILLATION [None]
  - BLOOD CREATINE PHOSPHOKINASE INCREASED [None]
  - BODY TEMPERATURE INCREASED [None]
  - C-REACTIVE PROTEIN INCREASED [None]
  - CHRONIC OBSTRUCTIVE PULMONARY DISEASE [None]
  - CONFUSIONAL STATE [None]
  - DIARRHOEA [None]
  - HYPERHIDROSIS [None]
  - INTUBATION [None]
  - LOWER RESPIRATORY TRACT INFECTION [None]
  - MALAISE [None]
  - OXYGEN SATURATION DECREASED [None]
  - PLATELET COUNT DECREASED [None]
  - PNEUMONIA [None]
  - PRODUCTIVE COUGH [None]
  - PYREXIA [None]
  - RESPIRATORY ARREST [None]
  - RESPIRATORY FAILURE [None]
  - RESPIRATORY RATE INCREASED [None]
  - SINUS TACHYCARDIA [None]
  - TRACHEOSTOMY [None]
  - URINARY INCONTINENCE [None]
  - WEANING FAILURE [None]
  - WHITE BLOOD CELL COUNT INCREASED [None]
